FAERS Safety Report 7709028-7 (Version None)
Quarter: 2011Q3

REPORT INFORMATION
  Report Type: 
  Country: None (occurrence: None)
  Receive Date: 20110825
  Receipt Date: 20110817
  Transmission Date: 20111222
  Serious: Yes (Hospitalization, Disabling)
  Sender: FDA-Public Use
  Company Number: FR-ROCHE-656442

PATIENT
  Sex: Male
  Weight: 72 kg

DRUGS (14)
  1. CORVASAL [Concomitant]
     Dates: start: 20090116
  2. RENAGEL [Concomitant]
     Dates: start: 20080711
  3. ATORVASTATIN CALCIUM [Concomitant]
     Dates: start: 20060104
  4. METHOXY POLYETHYLENE GLYCOL-EPOETIN BETA [Suspect]
     Dosage: FORM: PRE-FILLED SYRINGE.
     Route: 042
     Dates: start: 20090407
  5. IKOREL [Concomitant]
     Dates: start: 20060309
  6. FOLIC ACID [Concomitant]
     Dates: start: 20091014
  7. MOTILIUM [Concomitant]
     Dates: start: 20091014
  8. ASPIRIN [Concomitant]
     Dates: start: 20020605
  9. METHOXY POLYETHYLENE GLYCOL-EPOETIN BETA [Suspect]
     Dosage: LAST DOSE PRIOR TO SAE ON 27 JULY 2009 WAS 75 UG AND WITH A BATCH LOT NUMBER H0004H20. FORM:PFS
     Route: 042
     Dates: start: 20090504, end: 20091019
  10. OMEPRAZOLE [Concomitant]
     Dates: start: 20000508
  11. ACETAMINOPHEN AND TRAMADOL HCL [Concomitant]
     Dates: start: 20071128
  12. FOLIC ACID [Concomitant]
     Dates: start: 20071115, end: 20080928
  13. MOTILIUM [Concomitant]
     Dates: start: 20071128, end: 20090928
  14. MOVIPREP [Concomitant]
     Dates: start: 20080815

REACTIONS (3)
  - OPTIC ISCHAEMIC NEUROPATHY [None]
  - LYMPHANGITIS [None]
  - CELLULITIS [None]
